FAERS Safety Report 5482101-2 (Version None)
Quarter: 2007Q4

REPORT INFORMATION
  Report Type: 
  Country: None (occurrence: None)
  Receive Date: 20071011
  Receipt Date: 20071003
  Transmission Date: 20080405
  Serious: Yes (Other)
  Sender: FDA-Public Use
  Company Number: PHNU2007DE03328

PATIENT
  Sex: Female
  Weight: 54 kg

DRUGS (1)
  1. ZOMETA [Suspect]
     Indication: OSTEOPOROSIS
     Dosage: TWICE PER YEAR
     Route: 042
     Dates: start: 20050101

REACTIONS (4)
  - BONE LESION [None]
  - IMPAIRED HEALING [None]
  - ORAL SURGERY [None]
  - OSTEONECROSIS [None]
